FAERS Safety Report 21644796 (Version 2)
Quarter: 2022Q4

REPORT INFORMATION
  Report Type: Report from Study
  Country: US (occurrence: US)
  Receive Date: 20221125
  Receipt Date: 20221130
  Transmission Date: 20230113
  Serious: Yes (Disabling, Other)
  Sender: FDA-Public Use
  Company Number: US-HORIZON THERAPEUTICS-HZN-2021-005110

PATIENT

DRUGS (2)
  1. TEPEZZA [Suspect]
     Active Substance: TEPROTUMUMAB-TRBW
     Indication: Endocrine ophthalmopathy
     Dosage: FIRST INFUSION 500 MG
     Route: 065
     Dates: start: 20210623
  2. TEPEZZA [Suspect]
     Active Substance: TEPROTUMUMAB-TRBW
     Dosage: LAST INFUSION 20 MG/KG
     Route: 042
     Dates: start: 20210713, end: 20210713

REACTIONS (13)
  - Deafness [Not Recovered/Not Resolved]
  - Disability [Unknown]
  - Ear discomfort [Recovered/Resolved]
  - Injury [Unknown]
  - Pain [Unknown]
  - Anxiety [Unknown]
  - General physical health deterioration [Unknown]
  - Condition aggravated [Unknown]
  - Physical disability [Unknown]
  - Discomfort [Unknown]
  - Hypoacusis [Recovered/Resolved]
  - Tinnitus [Not Recovered/Not Resolved]
  - Economic problem [Unknown]

NARRATIVE: CASE EVENT DATE: 20210725
